FAERS Safety Report 8402485-2 (Version None)
Quarter: 2012Q2

REPORT INFORMATION
  Report Type: 
  Country: None (occurrence: None)
  Receive Date: 20120323
  Receipt Date: 20110106
  Transmission Date: 20120825
  Serious: Yes (Hospitalization)
  Sender: FDA-Public Use
  Company Number: 163-21880-11010689

PATIENT
  Age: 63 Year
  Sex: Male
  Weight: 70.45 kg

DRUGS (7)
  1. CELEXA [Concomitant]
  2. MAGNESIUM (MAGNESIUM) [Concomitant]
  3. REVLIMID [Suspect]
     Indication: MULTIPLE MYELOMA
     Dosage: 25 MG, QD X 21 DAYS, PO
     Route: 048
     Dates: start: 20090731
  4. FOLIC ACID [Concomitant]
  5. DEXAMETHASONE [Concomitant]
  6. OMEPRAZOLE [Concomitant]
  7. ASPIRIN [Concomitant]

REACTIONS (2)
  - PAIN [None]
  - DRUG DOSE OMISSION [None]
